FAERS Safety Report 7433358-X (Version None)
Quarter: 2011Q2

REPORT INFORMATION
  Report Type: 
  Country: None (occurrence: None)
  Receive Date: 20110422
  Receipt Date: 20110419
  Transmission Date: 20111010
  Serious: No
  Sender: FDA-Public Use
  Company Number: US-B.I. PHARMACEUTICALS,INC./RIDGEFIELD-2011-BP-11122BP

PATIENT
  Sex: Male

DRUGS (8)
  1. DIOVAN [Concomitant]
     Indication: HYPERTENSION
  2. AVODART [Concomitant]
     Indication: BENIGN PROSTATIC HYPERPLASIA
  3. LIPOFLAVINOID [Concomitant]
     Indication: VERTIGO
  4. PRADAXA [Suspect]
     Indication: ATRIAL FIBRILLATION
     Dosage: 300 MG
     Route: 048
     Dates: start: 20101201
  5. PRADAXA [Suspect]
     Dosage: 150 MG
     Route: 048
  6. SIMVASTATIN [Concomitant]
     Indication: BLOOD CHOLESTEROL INCREASED
  7. LEVOTHROID [Concomitant]
     Indication: HYPOTHYROIDISM
  8. DIGOXIN [Concomitant]

REACTIONS (3)
  - PLATELET COUNT DECREASED [None]
  - CONTUSION [None]
  - RASH PRURITIC [None]
